FAERS Safety Report 9306473 (Version 2)
Quarter: 2013Q2

REPORT INFORMATION
  Report Type: Spontaneous
  Country: US (occurrence: US)
  Receive Date: 20130523
  Receipt Date: 20130626
  Transmission Date: 20140414
  Serious: Yes (Disabling)
  Sender: FDA-Public Use
  Company Number: US-009507513-1305USA011554

PATIENT
  Sex: Female
  Weight: 144.67 kg

DRUGS (1)
  1. NASONEX [Suspect]
     Indication: EUSTACHIAN TUBE DYSFUNCTION
     Dosage: 7 SPRAY EACH NOSTRIL, BID
     Route: 045
     Dates: start: 201302, end: 2013

REACTIONS (3)
  - Hyposmia [Not Recovered/Not Resolved]
  - Dysgeusia [Not Recovered/Not Resolved]
  - Nasal septum deviation [Unknown]
